FAERS Safety Report 7619370-6 (Version None)
Quarter: 2011Q3

REPORT INFORMATION
  Report Type: 
  Country: None (occurrence: None)
  Receive Date: 20110719
  Receipt Date: 20110711
  Transmission Date: 20111222
  Serious: Yes (Hospitalization)
  Sender: FDA-Public Use
  Company Number: US-BIOGENIDEC-2011BI023345

PATIENT
  Age: 52 Year
  Sex: Female

DRUGS (1)
  1. TYSABRI [Suspect]
     Indication: MULTIPLE SCLEROSIS
     Route: 042
     Dates: start: 20110310, end: 20110602

REACTIONS (9)
  - WOUND INFECTION [None]
  - COGNITIVE DISORDER [None]
  - OSTEOMYELITIS [None]
  - DRUG INEFFECTIVE [None]
  - MUSCLE SPASMS [None]
  - ASTHENIA [None]
  - SKIN DISCOLOURATION [None]
  - INCONTINENCE [None]
  - DELIRIUM [None]
